FAERS Safety Report 19894193 (Version 2)
Quarter: 2021Q4

REPORT INFORMATION
  Report Type: Spontaneous
  Country: GB (occurrence: GB)
  Receive Date: 20210928
  Receipt Date: 20211005
  Transmission Date: 20220303
  Serious: Yes (Other)
  Sender: FDA-Public Use
  Company Number: GB-MYLANLABS-2021M1066370

PATIENT
  Age: 47 Year
  Sex: Female

DRUGS (6)
  1. CLOZARIL [Suspect]
     Active Substance: CLOZAPINE
     Indication: Schizophrenia
     Dosage: UNK
     Route: 048
     Dates: start: 20101209
  2. CLOZARIL [Suspect]
     Active Substance: CLOZAPINE
     Dosage: 300 MILLIGRAM, QD (NOCTE)
     Route: 048
     Dates: end: 20201130
  3. CLOZARIL [Suspect]
     Active Substance: CLOZAPINE
     Dosage: 225 MILLIGRAM, QD (NOCTE)
     Route: 048
     Dates: start: 20201130
  4. CLOZARIL [Suspect]
     Active Substance: CLOZAPINE
     Dosage: 175 MILLIGRAM, QD (NOCTE)
     Route: 048
     Dates: start: 20201229
  5. CLOZARIL [Suspect]
     Active Substance: CLOZAPINE
     Dosage: 150 MILLIGRAM, QD (NOCTE)
     Route: 048
     Dates: start: 20210416
  6. CLOZARIL [Suspect]
     Active Substance: CLOZAPINE
     Dosage: 100 MILLIGRAM, QD (NOCTE)
     Route: 048
     Dates: start: 20210917

REACTIONS (5)
  - Mental impairment [Not Recovered/Not Resolved]
  - Musculoskeletal injury [Unknown]
  - Antipsychotic drug level increased [Unknown]
  - Weight bearing difficulty [Unknown]
  - Weight increased [Unknown]
